FAERS Safety Report 6184073-4 (Version None)
Quarter: 2009Q2

REPORT INFORMATION
  Report Type: 
  Country: None (occurrence: None)
  Receive Date: 20090508
  Receipt Date: 20090430
  Transmission Date: 20091009
  Serious: Yes (Other)
  Sender: FDA-Public Use
  Company Number: US-BAYER-200911368BCC

PATIENT

DRUGS (1)
  1. ORIGINAL ALKA-SELTZER TABLETS [Suspect]
     Indication: DRUG USE FOR UNKNOWN INDICATION
     Dosage: BOTTLE COUNT UNKNOWN

REACTIONS (1)
  - AUTISM [None]
